FAERS Safety Report 11187127 (Version 1)
Quarter: 2015Q2

REPORT INFORMATION
  Report Type: Spontaneous
  Country: US (occurrence: US)
  Receive Date: 20150615
  Receipt Date: 20150615
  Transmission Date: 20150821
  Serious: No
  Sender: FDA-Public Use
  Company Number: US-JNJFOC-20150510410

PATIENT

DRUGS (1)
  1. RAZADYNE ER [Suspect]
     Active Substance: GALANTAMINE HYDROBROMIDE
     Indication: PRODUCT USED FOR UNKNOWN INDICATION
     Route: 065

REACTIONS (5)
  - Wheezing [Unknown]
  - Flushing [Recovered/Resolved]
  - Respiratory disorder [Unknown]
  - Erythema [Recovered/Resolved]
  - Pruritus generalised [Recovered/Resolved]
